FAERS Safety Report 7557530-3 (Version None)
Quarter: 2011Q2

REPORT INFORMATION
  Report Type: 
  Country: None (occurrence: None)
  Receive Date: 20110610
  Receipt Date: 20110601
  Transmission Date: 20111010
  Serious: Yes (Congenital Anomaly, Other)
  Sender: FDA-Public Use
  Company Number: KR-002270

PATIENT
  Sex: Male

DRUGS (9)
  1. QUETIAPINE [Suspect]
     Dosage: (25 MG TRANSPLACENTAL)
     Route: 064
  2. THIOPENTAL SODIUM [Suspect]
     Dosage: (4 MG/KG TRANSPLACENTAL)
     Route: 064
  3. RITODRINE HYDROCHLORIDE [Suspect]
     Dosage: (50 MG TRANSPLACENTAL)
     Route: 064
  4. TRAZODONE HCL [Suspect]
     Dosage: 25 MG TRANSPLACENTAL)
     Route: 064
  5. ZOLPIDEM [Suspect]
     Dosage: (10 MG TRANSPLACENTAL)
     Route: 064
  6. OLANZAPINE [Suspect]
     Dosage: (5 MG TRANSPLACENTAL)
     Route: 064
  7. RISPERIDONE [Suspect]
     Dosage: (3 MG TRANSPLACENTAL)
     Route: 064
  8. SUCCINYLCHOLINE CHLORIDE [Suspect]
     Dosage: (1MG/KG TRANSPLACENTAL)
     Route: 064
  9. BENZTROPINE MESYLATE [Suspect]
     Dosage: (2 MG TRANSPLACENTAL)
     Route: 064

REACTIONS (5)
  - PYLORIC STENOSIS [None]
  - MATERNAL DRUGS AFFECTING FOETUS [None]
  - PREMATURE BABY [None]
  - CAESAREAN SECTION [None]
  - NEONATAL RESPIRATORY DISTRESS SYNDROME [None]
